FAERS Safety Report 6041924-1 (Version None)
Quarter: 2009Q1

REPORT INFORMATION
  Report Type: 
  Country: None (occurrence: None)
  Receive Date: 20090116
  Receipt Date: 20080506
  Transmission Date: 20090719
  Serious: No
  Sender: FDA-Public Use
  Company Number: US-BAYER-200812115BCC

PATIENT
  Age: 35 Year
  Sex: Female
  Weight: 47 kg

DRUGS (2)
  1. ALEVE [Suspect]
     Indication: HEADACHE
     Route: 048
  2. ONE-A-DAY ACTIVE [Concomitant]

REACTIONS (1)
  - HEADACHE [None]
